FAERS Safety Report 20356958 (Version 2)
Quarter: 2023Q1

REPORT INFORMATION
  Report Type: Spontaneous
  Country: US (occurrence: US)
  Receive Date: 20220120
  Receipt Date: 20230106
  Transmission Date: 20230417
  Serious: Yes (Other)
  Sender: FDA-Public Use
  Company Number: US-TERSERA THERAPEUTICS LLC-2021TRS003594

PATIENT

DRUGS (9)
  1. PRIALT [Suspect]
     Active Substance: ZICONOTIDE ACETATE
     Indication: Trigeminal neuralgia
     Dosage: 6.012 MCG, QD (CONCENTRATION: 12 MCG)
     Route: 037
  2. PRIALT [Suspect]
     Active Substance: ZICONOTIDE ACETATE
     Indication: Pain
     Dosage: DECREASED DOSE BY 16.8 PERCENT
     Route: 037
  3. PRIALT [Suspect]
     Active Substance: ZICONOTIDE ACETATE
     Dosage: DECREASED DOSE BY ADDITIONAL 10 PERCENT
     Route: 037
  4. PRIALT [Suspect]
     Active Substance: ZICONOTIDE ACETATE
     Dosage: (INCREASED  TO 4.5 MEQ)
     Route: 037
  5. CLONIDINE [Suspect]
     Active Substance: CLONIDINE
     Indication: Product used for unknown indication
     Dosage: 100.207 MCG, QD (CONCENTRATION: 200 MCG)
     Route: 037
  6. CLONIDINE [Suspect]
     Active Substance: CLONIDINE
     Dosage: 120.249 MCG, QD (CONCENTRATION: 240 MCG)
     Route: 037
  7. MORPHINE [Suspect]
     Active Substance: MORPHINE
     Indication: Product used for unknown indication
     Dosage: 3.306 MG, QD (CONCENTRATION: 6.6 MG)
     Route: 037
  8. MORPHINE [Suspect]
     Active Substance: MORPHINE
     Dosage: (INCREASED 3.0 MG, QD)
     Route: 037
  9. BUPIVACAINE [Suspect]
     Active Substance: BUPIVACAINE
     Indication: Product used for unknown indication
     Dosage: 1.002 MG, QD (CONCENTRATION: 2 MG)
     Route: 037

REACTIONS (7)
  - Hallucination, auditory [Recovered/Resolved]
  - Haematuria [Not Recovered/Not Resolved]
  - Bladder pain [Not Recovered/Not Resolved]
  - Urinary incontinence [Not Recovered/Not Resolved]
  - Urinary tract infection [Recovered/Resolved]
  - Pain [Recovered/Resolved]
  - Off label use [Unknown]

NARRATIVE: CASE EVENT DATE: 20210521
